FAERS Safety Report 26036926 (Version 1)
Quarter: 2025Q4

REPORT INFORMATION
  Report Type: Report from Study
  Country: GB (occurrence: GB)
  Receive Date: 20251112
  Receipt Date: 20251112
  Transmission Date: 20260117
  Serious: Yes (Other)
  Sender: TAKEDA
  Company Number: GB-TAKEDA-2025TUS051781

PATIENT
  Age: 78 Year
  Sex: Male

DRUGS (4)
  1. TEDUGLUTIDE [Suspect]
     Active Substance: TEDUGLUTIDE
     Indication: Short-bowel syndrome
     Dosage: 2 MILLIGRAM, QD
  2. TEDUGLUTIDE [Suspect]
     Active Substance: TEDUGLUTIDE
     Dosage: 1.90 MILLIGRAM, QD
     Dates: start: 20250601
  3. TEDUGLUTIDE [Suspect]
     Active Substance: TEDUGLUTIDE
     Dosage: 2 MILLIGRAM, QD
     Dates: start: 20250602
  4. TEDUGLUTIDE [Suspect]
     Active Substance: TEDUGLUTIDE

REACTIONS (12)
  - Cholecystitis infective [Unknown]
  - Myocardial infarction [Unknown]
  - General physical health deterioration [Unknown]
  - Stoma complication [Unknown]
  - Faeces discoloured [Unknown]
  - Diarrhoea [Unknown]
  - Drug ineffective [Unknown]
  - Faecal volume decreased [Unknown]
  - Sleep disorder [Unknown]
  - Anxiety [Unknown]
  - Nausea [Recovered/Resolved]
  - Dyspnoea [Recovered/Resolved]
